FAERS Safety Report 25484819 (Version 1)
Quarter: 2025Q2

REPORT INFORMATION
  Report Type: Spontaneous
  Country: US (occurrence: US)
  Receive Date: 20250626
  Receipt Date: 20250626
  Transmission Date: 20250717
  Serious: No
  Sender: MYLAN
  Company Number: US-MYLANLABS-2025M1052648

PATIENT
  Age: 62 Year
  Sex: Female
  Weight: 67.13 kg

DRUGS (3)
  1. ESTRADIOL TRANSDERMAL SYSTEM [Suspect]
     Active Substance: ESTRADIOL
     Indication: Hot flush
     Dosage: 0.05 MILLIGRAM, QD (PER DAY, TWICE-WEEKLY)
  2. ESTRADIOL TRANSDERMAL SYSTEM [Suspect]
     Active Substance: ESTRADIOL
     Indication: Menopause
  3. PROGESTERONE [Concomitant]
     Active Substance: PROGESTERONE

REACTIONS (3)
  - Application site discolouration [Not Recovered/Not Resolved]
  - Memory impairment [Unknown]
  - Product use issue [Unknown]

NARRATIVE: CASE EVENT DATE: 20250617
